FAERS Safety Report 17504283 (Version 4)
Quarter: 2021Q3

REPORT INFORMATION
  Report Type: Spontaneous
  Country: BE (occurrence: BE)
  Receive Date: 20200305
  Receipt Date: 20210723
  Transmission Date: 20211014
  Serious: Yes (Other)
  Sender: FDA-Public Use
  Company Number: BE-B.I. PHARMACEUTICALS,INC./RIDGEFIELD-2020-BI-010823

PATIENT
  Age: 80 Year
  Sex: Female
  Weight: 49.6 kg

DRUGS (7)
  1. GILOTRIF [Suspect]
     Active Substance: AFATINIB
     Route: 048
     Dates: start: 20200215, end: 20200318
  2. GILOTRIF [Suspect]
     Active Substance: AFATINIB
     Indication: LUNG ADENOCARCINOMA
     Route: 048
     Dates: start: 20200125, end: 202002
  3. IMODIUM [Concomitant]
     Active Substance: LOPERAMIDE HYDROCHLORIDE
     Indication: DIARRHOEA
     Route: 065
  4. ACEROLA [Concomitant]
     Active Substance: ACEROLA
     Indication: PRODUCT USED FOR UNKNOWN INDICATION
     Route: 048
  5. LODOZ [Concomitant]
     Active Substance: BISOPROLOL FUMARATE\HYDROCHLOROTHIAZIDE
     Indication: SYSTOLIC HYPERTENSION
     Dosage: 6,25/2,5
     Route: 048
     Dates: end: 20200303
  6. ASAFLOW [Concomitant]
     Active Substance: ASPIRIN
     Indication: HYPERTENSION
     Dosage: SINCE 2 YEARS
     Route: 048
  7. LORMETAZEPAM [Concomitant]
     Active Substance: LORMETAZEPAM
     Indication: PRODUCT USED FOR UNKNOWN INDICATION
     Dosage: BEFORE SLEEP
     Route: 048
     Dates: start: 20200215

REACTIONS (12)
  - Burn oral cavity [Unknown]
  - Dyspepsia [Not Recovered/Not Resolved]
  - Oesophagitis [Not Recovered/Not Resolved]
  - Nausea [Not Recovered/Not Resolved]
  - Dermatitis acneiform [Unknown]
  - Aphthous ulcer [Recovering/Resolving]
  - Diarrhoea [Recovering/Resolving]
  - Alopecia [Not Recovered/Not Resolved]
  - Stomatitis [Unknown]
  - Skin fissures [Unknown]
  - Fatigue [Unknown]
  - Gastritis [Not Recovered/Not Resolved]

NARRATIVE: CASE EVENT DATE: 20200201
